FAERS Safety Report 10948875 (Version 1)
Quarter: 2015Q1

REPORT INFORMATION
  Report Type: Spontaneous
  Country: US (occurrence: US)
  Receive Date: 20150324
  Receipt Date: 20150324
  Transmission Date: 20150721
  Serious: No
  Sender: FDA-Public Use
  Company Number: US-PFIZER INC-2015097104

PATIENT
  Sex: Male

DRUGS (1)
  1. LYRICA [Suspect]
     Active Substance: PREGABALIN
     Dosage: 150 MG, 2X/DAY

REACTIONS (5)
  - Musculoskeletal stiffness [Unknown]
  - Pain [Unknown]
  - Confusional state [Unknown]
  - Terminal insomnia [Unknown]
  - Hypoaesthesia [Unknown]
